FAERS Safety Report 4307805-6 (Version None)
Quarter: 2004Q1

REPORT INFORMATION
  Report Type: 
  Country: None (occurrence: None)
  Receive Date: 20040227
  Receipt Date: 20040209
  Transmission Date: 20041129
  Serious: Yes (Hospitalization)
  Sender: FDA-Public Use
  Company Number: 601101

PATIENT
  Age: 80 Year
  Sex: Female
  Weight: 64 kg

DRUGS (1)
  1. GAMMAGARD S/D [Suspect]
     Indication: SECONDARY IMMUNODEFICIENCY
     Dosage: 10 GM; ONCE; INTRAVENOUS
     Route: 042
     Dates: start: 20040128, end: 20040128

REACTIONS (2)
  - DYSPNOEA [None]
  - OXYGEN SATURATION DECREASED [None]
